FAERS Safety Report 8684077 (Version 2)
Quarter: 2013Q3

REPORT INFORMATION
  Report Type: Report from Study
  Country: DE (occurrence: DE)
  Receive Date: 20120726
  Receipt Date: 20130820
  Transmission Date: 20140515
  Serious: Yes (Hospitalization)
  Sender: FDA-Public Use
  Company Number: DE-US-EMD SERONO, INC.-7148997

PATIENT
  Sex: Female
  Weight: 40 kg

DRUGS (2)
  1. SAIZEN [Suspect]
     Indication: DWARFISM
     Route: 058
     Dates: start: 20120411
  2. SAIZEN [Suspect]
     Indication: TURNER^S SYNDROME

REACTIONS (2)
  - Bile duct stenosis [Not Recovered/Not Resolved]
  - Hydrocholecystis [Recovered/Resolved with Sequelae]
